FAERS Safety Report 6995904-X (Version None)
Quarter: 2010Q3

REPORT INFORMATION
  Report Type: 
  Country: None (occurrence: None)
  Receive Date: 20100918
  Receipt Date: 20090614
  Transmission Date: 20110219
  Serious: No
  Sender: FDA-Public Use
  Company Number: US-WYE-H06951208

PATIENT
  Sex: Female

DRUGS (3)
  1. EFFEXOR XR [Suspect]
     Indication: MIGRAINE
     Dates: start: 20020101, end: 20090101
  2. EFFEXOR XR [Suspect]
     Indication: DEPRESSION
     Dosage: ^HAD TO GO BACK ON MEDICINE^, UNKNOWN DOSE
     Dates: start: 20090101
  3. EFFEXOR XR [Suspect]
     Indication: ANXIETY

REACTIONS (10)
  - BURNING SENSATION [None]
  - DIARRHOEA [None]
  - DIZZINESS [None]
  - DRUG WITHDRAWAL SYNDROME [None]
  - IMPAIRED DRIVING ABILITY [None]
  - MALAISE [None]
  - MOTION SICKNESS [None]
  - NAUSEA [None]
  - TREMOR [None]
  - UNEVALUABLE EVENT [None]
